FAERS Safety Report 5989288-3 (Version None)
Quarter: 2008Q4

REPORT INFORMATION
  Report Type: 
  Country: None (occurrence: None)
  Receive Date: 20081205
  Receipt Date: 20081125
  Transmission Date: 20090506
  Serious: Yes (Death, Hospitalization, Other)
  Sender: FDA-Public Use
  Company Number: 54639

PATIENT
  Age: 15 Year
  Sex: Male

DRUGS (1)
  1. AMIKACIN SULFATE [Suspect]
     Indication: ACUTE LYMPHOCYTIC LEUKAEMIA

REACTIONS (7)
  - BRONCHOPULMONARY ASPERGILLOSIS [None]
  - COAGULOPATHY [None]
  - HEPATOSPLENIC CANDIDIASIS [None]
  - NEUTROPENIC COLITIS [None]
  - PLEURITIC PAIN [None]
  - PULMONARY HAEMORRHAGE [None]
  - THROMBOCYTOPENIA [None]
